FAERS Safety Report 17692086 (Version 1)
Quarter: 2020Q2

REPORT INFORMATION
  Report Type: Spontaneous
  Country: US (occurrence: US)
  Receive Date: 20200420
  Receipt Date: 20200420
  Transmission Date: 20200714
  Serious: Yes (Death)
  Sender: FDA-Public Use
  Company Number: None

PATIENT
  Age: 81 Year
  Sex: Male
  Weight: 67.31 kg

DRUGS (1)
  1. ELBASVIR/GRAZOPREVIR (ELBASVIR 50MG/GRAZOPREVIR 100MG TAB) ? [Suspect]
     Active Substance: ELBASVIR\GRAZOPREVIR
     Indication: HEPATITIS C
     Dosage: ?          OTHER DOSE:50/100 MG;?
     Route: 048
     Dates: start: 20170925, end: 20171105

REACTIONS (3)
  - Cerebrovascular accident [None]
  - Drug interaction [None]
  - International normalised ratio fluctuation [None]

NARRATIVE: CASE EVENT DATE: 20171105
